FAERS Safety Report 4475340-0 (Version None)
Quarter: 2004Q4

REPORT INFORMATION
  Report Type: 
  Country: None (occurrence: None)
  Receive Date: 20041014
  Receipt Date: 20040930
  Transmission Date: 20050328
  Serious: Yes (Hospitalization)
  Sender: FDA-Public Use
  Company Number: 2004UW19447

PATIENT
  Age: 68 Year
  Sex: Female
  Weight: 68.0396 kg

DRUGS (7)
  1. CRESTOR [Suspect]
     Dates: start: 20040601, end: 20040801
  2. OSCAL 500-D [Concomitant]
  3. GLUCOSAMINE CHONDROITIN [Concomitant]
  4. NIACIN [Concomitant]
  5. VITAMIN E [Concomitant]
  6. MULTI-VITAMINS [Concomitant]
  7. FLAXSEED OIL [Concomitant]

REACTIONS (9)
  - CATHETER RELATED COMPLICATION [None]
  - DECREASED APPETITE [None]
  - HYPERCOAGULATION [None]
  - PANCREATIC NECROSIS [None]
  - PANCREATIC PSEUDOCYST [None]
  - PANCREATITIS ACUTE [None]
  - SUBCLAVIAN VEIN THROMBOSIS [None]
  - THROMBOSIS [None]
  - VIRAL INFECTION [None]
